FAERS Safety Report 9156353 (Version 1)
Quarter: 2013Q1

REPORT INFORMATION
  Report Type: Spontaneous
  Country: US (occurrence: None)
  Receive Date: 20130307
  Receipt Date: 20130307
  Transmission Date: 20140127
  Serious: Yes (Disabling)
  Sender: FDA-Public Use
  Company Number: None

PATIENT
  Age: 64 Year
  Sex: Female
  Weight: 54.43 kg

DRUGS (1)
  1. OXYBUTYNIN [Suspect]
     Indication: BLADDER DISORDER
     Route: 048
     Dates: start: 20111201, end: 20130305

REACTIONS (3)
  - Dry mouth [None]
  - Dysgeusia [None]
  - Dental caries [None]
